FAERS Safety Report 17461599 (Version 12)
Quarter: 2022Q3

REPORT INFORMATION
  Report Type: Other
  Country: CA (occurrence: None)
  Receive Date: 20200226
  Receipt Date: 20220930
  Transmission Date: 20221027
  Serious: Yes (Other)
  Sender: FDA-Public Use
  Company Number: CA-ROCHE-2387756

PATIENT
  Age: 24 Year
  Sex: Female

DRUGS (9)
  1. OCREVUS [Suspect]
     Active Substance: OCRELIZUMAB
     Indication: Relapsing-remitting multiple sclerosis
     Dosage: 300 MG AT DAY 0 AND 14, THEN 600 MG EVERY 6 MONTH
     Route: 042
     Dates: start: 20190807
  2. OCREVUS [Suspect]
     Active Substance: OCRELIZUMAB
     Route: 042
     Dates: start: 20200210
  3. WELLBUTRIN [Concomitant]
     Active Substance: BUPROPION HYDROCHLORIDE
     Dosage: EVERY MORNING
  4. OXYBUTYNIN [Concomitant]
     Active Substance: OXYBUTYNIN
     Dosage: EVERY NIGHT
     Dates: start: 20200207
  5. MELATONIN [Concomitant]
     Active Substance: MELATONIN
     Dosage: 20-30 MG?EVERY NIGHT
  6. CONCERTA [Concomitant]
     Active Substance: METHYLPHENIDATE HYDROCHLORIDE
  7. IRON [Concomitant]
     Active Substance: IRON
     Dosage: DAILY
  8. TYLENOL [Concomitant]
     Active Substance: ACETAMINOPHEN
  9. GRAVOL [Concomitant]
     Active Substance: DIMENHYDRINATE

REACTIONS (20)
  - Multiple sclerosis [Unknown]
  - Cystitis [Not Recovered/Not Resolved]
  - Cough [Not Recovered/Not Resolved]
  - Stress [Recovered/Resolved]
  - Feeling hot [Unknown]
  - Nausea [Unknown]
  - Blood pressure decreased [Unknown]
  - Pain [Unknown]
  - Limb discomfort [Unknown]
  - Sneezing [Unknown]
  - Acne [Unknown]
  - Amnesia [Unknown]
  - Cough [Unknown]
  - Stress [Unknown]
  - Infusion related reaction [Recovered/Resolved]
  - Irritability [Not Recovered/Not Resolved]
  - Aphasia [Not Recovered/Not Resolved]
  - Temperature intolerance [Not Recovered/Not Resolved]
  - Infusion related reaction [Recovered/Resolved]
  - COVID-19 [Not Recovered/Not Resolved]

NARRATIVE: CASE EVENT DATE: 20191201
